FAERS Safety Report 17799466 (Version 1)
Quarter: 2020Q2

REPORT INFORMATION
  Report Type: Spontaneous
  Country: CA (occurrence: CA)
  Receive Date: 20200518
  Receipt Date: 20200518
  Transmission Date: 20200714
  Serious: Yes (Other)
  Sender: FDA-Public Use
  Company Number: NVSC2020CA134619

PATIENT
  Sex: Female

DRUGS (1)
  1. LETROZOLE. [Suspect]
     Active Substance: LETROZOLE
     Indication: RETROPERITONEAL LYMPHADENOPATHY
     Dosage: UNK
     Route: 065
     Dates: start: 201903

REACTIONS (5)
  - Product use in unapproved indication [Unknown]
  - Retroperitoneal lymphadenopathy [Unknown]
  - Condition aggravated [Unknown]
  - Lung disorder [Unknown]
  - Drug ineffective [Unknown]
